FAERS Safety Report 7347654-8 (Version None)
Quarter: 2011Q1

REPORT INFORMATION
  Report Type: 
  Country: None (occurrence: None)
  Receive Date: 20110311
  Receipt Date: 20101129
  Transmission Date: 20110831
  Serious: Yes (Hospitalization)
  Sender: FDA-Public Use
  Company Number: A0899071A

PATIENT
  Age: 48 Year
  Sex: Male

DRUGS (1)
  1. AVANDIA [Suspect]
     Dosage: 8MG PER DAY
     Route: 048
     Dates: start: 19990101, end: 20070620

REACTIONS (6)
  - OEDEMA PERIPHERAL [None]
  - ARRHYTHMIA [None]
  - IMPLANTABLE DEFIBRILLATOR INSERTION [None]
  - DYSPNOEA [None]
  - HYPERTENSION [None]
  - CARDIAC FAILURE [None]
